FAERS Safety Report 5084791-5 (Version None)
Quarter: 2006Q3

REPORT INFORMATION
  Report Type: 
  Country: None (occurrence: None)
  Receive Date: 20060815
  Receipt Date: 20060728
  Transmission Date: 20061208
  Serious: Yes (Death)
  Sender: FDA-Public Use
  Company Number: DE200607005205

PATIENT
  Sex: Female

DRUGS (2)
  1. FORTEO [Suspect]
     Indication: OSTEOPOROSIS
     Dosage: DAILY (1/D), SUBCUTANEOUS
     Route: 058
     Dates: start: 20050613, end: 20060701
  2. FORTEO [Concomitant]

REACTIONS (1)
  - DEATH [None]
